FAERS Safety Report 7624909 (Version 3)
Quarter: 2012Q4

REPORT INFORMATION
  Report Type: 
  Country: GB (occurrence: GB)
  Receive Date: 20101012
  Receipt Date: 20120911
  Transmission Date: 20130627
  Serious: Yes (Death, Disabling, Other)
  Sender: FDA-Public Use
  Company Number: GB-RANBAXY-2010RR-38681

PATIENT
  Age: 1 Month

DRUGS (2)
  1. GABAPENTIN [Suspect]
     Dosage: UNK
     Route: 064
  2. VALPROIC ACID [Suspect]
     Dosage: 2500 mg/day
     Route: 064

REACTIONS (4)
  - Foetal anticonvulsant syndrome [Unknown]
  - Craniosynostosis [Unknown]
  - Speech disorder developmental [Unknown]
  - Foetal exposure during pregnancy [Unknown]
